FAERS Safety Report 12556559 (Version 1)
Quarter: 2016Q3

REPORT INFORMATION
  Report Type: Spontaneous
  Country: US (occurrence: US)
  Receive Date: 20160714
  Receipt Date: 20160714
  Transmission Date: 20161109
  Serious: Yes (Hospitalization, Other)
  Sender: FDA-Public Use
  Company Number: US-PFIZER INC-2016338029

PATIENT
  Age: 44 Year
  Sex: Male

DRUGS (5)
  1. LEVOXYL [Suspect]
     Active Substance: LEVOTHYROXINE SODIUM
     Indication: HYPOTHYROIDISM
     Dosage: 50 UG, UNK
  2. LEVOXYL [Suspect]
     Active Substance: LEVOTHYROXINE SODIUM
     Dosage: 125 UG, UNK
  3. LEVOXYL [Suspect]
     Active Substance: LEVOTHYROXINE SODIUM
     Dosage: 88 UG, UNK
  4. LEVOXYL [Suspect]
     Active Substance: LEVOTHYROXINE SODIUM
     Dosage: 100 UG, UNK
  5. OMEPRAZOLE. [Concomitant]
     Active Substance: OMEPRAZOLE
     Indication: PROPHYLAXIS
     Dosage: 120 MG, 1X/DAY, ON AND OFF

REACTIONS (6)
  - Peripheral swelling [Unknown]
  - Oesophageal achalasia [Unknown]
  - Anaemia [Recovering/Resolving]
  - Thyroid disorder [Unknown]
  - Joint swelling [Unknown]
  - Vitamin B12 deficiency [Recovering/Resolving]

NARRATIVE: CASE EVENT DATE: 2000
